FAERS Safety Report 4414604-3 (Version None)
Quarter: 2004Q3

REPORT INFORMATION
  Report Type: 
  Country: None (occurrence: None)
  Receive Date: 20040729
  Receipt Date: 20040716
  Transmission Date: 20050211
  Serious: Yes (Hospitalization)
  Sender: FDA-Public Use
  Company Number: JP-JNJFOC-20040700721

PATIENT
  Age: 65 Year
  Sex: Female
  Weight: 60 kg

DRUGS (14)
  1. REMICADE [Suspect]
     Indication: RHEUMATOID ARTHRITIS
     Dosage: 3 MG/KG
     Dates: start: 20040521
  2. REMICADE [Suspect]
     Indication: RHEUMATOID ARTHRITIS
     Dosage: 3 MG/KG
     Dates: start: 20040604
  3. PREDNISOLONE [Suspect]
     Indication: RHEUMATOID ARTHRITIS
     Dosage: 5 MG, 1 IN 1 DAY; 1 MG 2 IN 1 D; 1 MG, 1 IN 1 DAY
     Dates: end: 20040611
  4. PREDNISOLONE [Suspect]
     Indication: RHEUMATOID ARTHRITIS
     Dosage: 5 MG, 1 IN 1 DAY; 1 MG 2 IN 1 D; 1 MG, 1 IN 1 DAY
     Dates: start: 20040612, end: 20040709
  5. RHEUMATREX [Suspect]
     Dosage: 4 MG, 1 IN 1 WEEK; 8 MG/KG, 1 IN 1 WEEK; 0.5 MG, 1 IN 1 WEEK; 13 MG, 1 IN 1 WEEK
     Dates: end: 20010917
  6. RHEUMATREX [Suspect]
     Dosage: 4 MG, 1 IN 1 WEEK; 8 MG/KG, 1 IN 1 WEEK; 0.5 MG, 1 IN 1 WEEK; 13 MG, 1 IN 1 WEEK
     Dates: start: 20010918, end: 20040129
  7. RHEUMATREX [Suspect]
     Dosage: 4 MG, 1 IN 1 WEEK; 8 MG/KG, 1 IN 1 WEEK; 0.5 MG, 1 IN 1 WEEK; 13 MG, 1 IN 1 WEEK
     Dates: start: 19991028
  8. RHEUMATREX [Suspect]
     Dosage: 4 MG, 1 IN 1 WEEK; 8 MG/KG, 1 IN 1 WEEK; 0.5 MG, 1 IN 1 WEEK; 13 MG, 1 IN 1 WEEK
     Dates: start: 20040130
  9. FOLIC ACID [Suspect]
     Indication: RHEUMATOID ARTHRITIS
     Dosage: 5 MG, IN 1 DAY
  10. ISONIAZID [Concomitant]
  11. LOXONIN (LOXOPROFEN SODIUM) SUPPOSITORY [Concomitant]
  12. SUCRALFATE [Concomitant]
  13. MOHRUS (KETOPROFEN) TAPE [Concomitant]
  14. MS HOT POULTICE (ALL OTHER THERAPEUTIC PRODUCTS) [Concomitant]

REACTIONS (1)
  - ESCHERICHIA SEPSIS [None]
